FAERS Safety Report 10392414 (Version 1)
Quarter: 2014Q3

REPORT INFORMATION
  Report Type: Spontaneous
  Country: US (occurrence: None)
  Receive Date: 20140815
  Receipt Date: 20140815
  Transmission Date: 20150326
  Serious: Yes (Death, Other)
  Sender: FDA-Public Use
  Company Number: 20120406VANCO2823

PATIENT
  Age: 70 Year
  Sex: Male

DRUGS (2)
  1. VANCOCIN [Suspect]
     Active Substance: VANCOMYCIN HYDROCHLORIDE
     Indication: CLOSTRIDIUM DIFFICILE INFECTION
     Dosage: 125 MG, 4 IN 1 D, ORAL
     Route: 048
     Dates: start: 20120120, end: 20120207
  2. CEFAZOLIN [Concomitant]
     Active Substance: CEFAZOLIN

REACTIONS (2)
  - Cardiac arrest [None]
  - Renal failure [None]

NARRATIVE: CASE EVENT DATE: 20120210
